FAERS Safety Report 5007792-1 (Version None)
Quarter: 2006Q2

REPORT INFORMATION
  Report Type: 
  Country: None (occurrence: None)
  Receive Date: 20060522
  Receipt Date: 20060513
  Transmission Date: 20061013
  Serious: Yes (Other)
  Sender: FDA-Public Use
  Company Number: GB-GLAXOSMITHKLINE-B0423791A

PATIENT
  Sex: Male
  Weight: 70 kg

DRUGS (2)
  1. BUPROPION [Suspect]
     Dosage: 150MG PER DAY
     Route: 048
     Dates: start: 20051207, end: 20060107
  2. FLUOXETINE [Concomitant]

REACTIONS (5)
  - ANGER [None]
  - DRUG WITHDRAWAL SYNDROME [None]
  - INSOMNIA [None]
  - IRRITABILITY [None]
  - MOOD ALTERED [None]
